FAERS Safety Report 21048274 (Version 1)
Quarter: 2022Q3

REPORT INFORMATION
  Report Type: Spontaneous
  Country: US (occurrence: None)
  Receive Date: 20220705
  Receipt Date: 20220705
  Transmission Date: 20221027
  Serious: Yes (Death)
  Sender: FDA-Public Use
  Company Number: None

PATIENT
  Sex: Male

DRUGS (2)
  1. TEMOZOLOMIDE [Suspect]
     Active Substance: TEMOZOLOMIDE
     Indication: Prostate cancer
     Dosage: FREQUENCY : AT BEDTIME;?
     Route: 048
     Dates: start: 20220315, end: 20220613
  2. CAPECITABINE [Concomitant]
     Active Substance: CAPECITABINE
     Dates: start: 20211215, end: 20220617

REACTIONS (2)
  - Neoplasm malignant [None]
  - Disease progression [None]
